FAERS Safety Report 21256764 (Version 2)
Quarter: 2022Q3

REPORT INFORMATION
  Report Type: Spontaneous
  Country: TH (occurrence: TH)
  Receive Date: 20220826
  Receipt Date: 20220905
  Transmission Date: 20221027
  Serious: Yes (Other)
  Sender: FDA-Public Use
  Company Number: ALC2022TH003825

PATIENT
  Sex: Male

DRUGS (2)
  1. TEARS NATURALE FREE [Suspect]
     Active Substance: DEXTRAN 70\HYPROMELLOSE 2910 (4000 MPA.S)
     Indication: Product used for unknown indication
     Dosage: UNK (1 BOX)
     Route: 047
  2. TEARS NATURALE FREE [Suspect]
     Active Substance: DEXTRAN 70\HYPROMELLOSE 2910 (4000 MPA.S)
     Dosage: UNK (2 BOXES)
     Route: 047

REACTIONS (6)
  - Product contamination microbial [Unknown]
  - Product contamination physical [Unknown]
  - Manufacturing process control procedure issue [Unknown]
  - Eye irritation [Unknown]
  - Ocular discomfort [Unknown]
  - Product colour issue [Unknown]

NARRATIVE: CASE EVENT DATE: 20220801
